FAERS Safety Report 11734419 (Version 11)
Quarter: 2018Q2

REPORT INFORMATION
  Report Type: Spontaneous
  Country: US (occurrence: US)
  Receive Date: 20151113
  Receipt Date: 20180514
  Transmission Date: 20180711
  Serious: Yes (Congenital Anomaly, Other)
  Sender: FDA-Public Use
  Company Number: PHEH2015US022821

PATIENT
  Sex: Male

DRUGS (3)
  1. ONDANSETRON [Suspect]
     Active Substance: ONDANSETRON
     Indication: FOETAL EXPOSURE DURING PREGNANCY
     Dosage: MOTHER^S DOSE: 8 MG PRN
     Route: 064
  2. ZOFRAN ODT [Suspect]
     Active Substance: ONDANSETRON HYDROCHLORIDE
     Indication: FOETAL EXPOSURE DURING PREGNANCY
     Dosage: MOTHER DOSE: 8 MG AS NEEDED (PRN)
     Route: 064
  3. ZOFRAN [Suspect]
     Active Substance: ONDANSETRON HYDROCHLORIDE
     Indication: FOETAL EXPOSURE DURING PREGNANCY
     Dosage: MOTHER^S DOSE: 8 MG PRN
     Route: 064

REACTIONS (50)
  - Bicuspid aortic valve [Unknown]
  - Congenital aortic anomaly [Unknown]
  - Aorta hypoplasia [Unknown]
  - Cardiomegaly [Unknown]
  - Cardiac murmur [Unknown]
  - Mitral valve incompetence [Unknown]
  - Pharyngitis [Unknown]
  - Ear pain [Unknown]
  - Tricuspid valve incompetence [Unknown]
  - Dehydration [Unknown]
  - Injury [Unknown]
  - Otitis externa [Unknown]
  - Cough [Unknown]
  - Left-to-right cardiac shunt [Unknown]
  - Upper respiratory tract infection [Unknown]
  - Multiple congenital abnormalities [Unknown]
  - Patent ductus arteriosus [Unknown]
  - Atelectasis neonatal [Unknown]
  - Pulmonary oedema [Unknown]
  - Cerumen impaction [Unknown]
  - Anxiety [Unknown]
  - Pneumonia [Unknown]
  - Seborrhoeic dermatitis [Unknown]
  - Hypermetropia [Unknown]
  - Hypertension [Unknown]
  - Ventricular septal defect [Unknown]
  - Cyanosis [Unknown]
  - Neuroleptic malignant syndrome [Unknown]
  - Visual impairment [Unknown]
  - Anhedonia [Unknown]
  - Rash [Unknown]
  - Left ventricle outflow tract obstruction [Unknown]
  - Atrial septal defect [Unknown]
  - Foetal exposure during pregnancy [Unknown]
  - Aortic valve disease mixed [Unknown]
  - Vomiting [Unknown]
  - Eczema [Unknown]
  - Otitis media acute [Unknown]
  - Asthma [Unknown]
  - Congenital anomaly [Unknown]
  - Coarctation of the aorta [Unknown]
  - Congenital cardiovascular anomaly [Unknown]
  - Right ventricular hypertrophy [Unknown]
  - Pleural effusion [Unknown]
  - Coronary artery disease [Unknown]
  - Emotional distress [Unknown]
  - Pain [Unknown]
  - Astigmatism [Unknown]
  - Pyrexia [Unknown]
  - Pain in extremity [Unknown]
